FAERS Safety Report 9053687 (Version 1)
Quarter: 2013Q1

REPORT INFORMATION
  Report Type: Spontaneous
  Country: US (occurrence: None)
  Receive Date: 20130201
  Receipt Date: 20130201
  Transmission Date: 20140127
  Serious: No
  Sender: FDA-Public Use
  Company Number: None

PATIENT
  Age: 47 Year
  Sex: Female
  Weight: 78.02 kg

DRUGS (3)
  1. CELEBREX [Suspect]
     Indication: INFLAMMATION
     Route: 002
     Dates: start: 20130107, end: 20130118
  2. CELEBREX [Suspect]
     Indication: PAIN
     Route: 002
     Dates: start: 20130107, end: 20130118
  3. CELEBREX [Suspect]
     Indication: KNEE OPERATION
     Route: 002
     Dates: start: 20130107, end: 20130118

REACTIONS (1)
  - Tongue disorder [None]
